FAERS Safety Report 5673163-8 (Version None)
Quarter: 2008Q2

REPORT INFORMATION
  Report Type: 
  Country: None (occurrence: None)
  Receive Date: 20080219
  Receipt Date: 20071220
  Transmission Date: 20081010
  Serious: No
  Sender: FDA-Public Use
  Company Number: TPA2007A02540

PATIENT
  Age: 81 Year
  Sex: Female
  Weight: 61.6892 kg

DRUGS (4)
  1. ROZEREM [Suspect]
     Indication: SLEEP DISORDER
     Dosage: 8 MG, QHS, PER ORAL
     Route: 048
     Dates: start: 20071001
  2. ZYMAR (GATIFLOXACIN) (OPHTHALMIC) [Concomitant]
  3. PRED FORTE (PREDNISOLONE ACETATE) (OPHTHALMIC) [Concomitant]
  4. ACULAR (KETOROLAC TROMETHAMINE) (OPHTHALMIC) [Concomitant]

REACTIONS (6)
  - CATARACT [None]
  - DEPRESSION [None]
  - FATIGUE [None]
  - GAIT DISTURBANCE [None]
  - IRRITABILITY [None]
  - SOMNOLENCE [None]
